FAERS Safety Report 8077951-2 (Version None)
Quarter: 2012Q1

REPORT INFORMATION
  Report Type: 
  Country: None (occurrence: None)
  Receive Date: 20120127
  Receipt Date: 20110105
  Transmission Date: 20120608
  Serious: No
  Sender: FDA-Public Use
  Company Number: US-ABBOTT-11P-163-0695501-00

PATIENT
  Age: 65 Year
  Sex: Female

DRUGS (9)
  1. ALPRAZOLAM [Concomitant]
     Indication: STRESS
     Dosage: 1/2 TAB AT BEDTIME DAILY
  2. BUSPAR [Concomitant]
     Indication: STRESS
  3. METHYLIN [Concomitant]
     Indication: DEPRESSION
  4. SIMVASTATIN [Concomitant]
     Indication: BLOOD CHOLESTEROL
     Dosage: AT BEDTIME
     Route: 048
  5. CYMBALTA [Concomitant]
     Indication: ILL-DEFINED DISORDER
     Dosage: 60 MG IN THE MORNING AND 30 MG AT BEDTIME
  6. HUMIRA [Suspect]
     Indication: CROHN'S DISEASE
     Dates: start: 20101222
  7. AMBIEN [Concomitant]
     Indication: INSOMNIA
     Dosage: AT BEDTIME
     Route: 048
  8. TYLENOL WITH CODEIN #3 [Concomitant]
     Indication: ARTHRALGIA
  9. LEVOTHYROXINE SODIUM [Concomitant]
     Indication: THYROID DISORDER
     Route: 048

REACTIONS (2)
  - WRONG TECHNIQUE IN DRUG USAGE PROCESS [None]
  - INJECTION SITE PAIN [None]
